FAERS Safety Report 18767557 (Version 1)
Quarter: 2021Q1

REPORT INFORMATION
  Report Type: Spontaneous
  Country: US (occurrence: US)
  Receive Date: 20210121
  Receipt Date: 20210121
  Transmission Date: 20210419
  Serious: No
  Sender: FDA-Public Use
  Company Number: None

PATIENT
  Age: 69 Year
  Sex: Female
  Weight: 53.1 kg

DRUGS (8)
  1. ROSUVASTATIN. [Concomitant]
     Active Substance: ROSUVASTATIN
  2. ELUXADOLINE [Concomitant]
     Active Substance: ELUXADOLINE
  3. OMEGA 3 [Concomitant]
     Active Substance: OMEGA-3 FATTY ACIDS
  4. VITAFUSION MULTIVITAMIN GUMMIES [Concomitant]
  5. DESSICATED THYROID [Concomitant]
  6. CLONAZEPAM. [Concomitant]
     Active Substance: CLONAZEPAM
  7. THERATEARS [Suspect]
     Active Substance: CARBOXYMETHYLCELLULOSE SODIUM
     Indication: DRY EYE
     Dosage: ?          QUANTITY:1 SINGLE USE VIAL;?
     Route: 047
     Dates: start: 20210114, end: 20210121
  8. CALCIUM CITRATE +D3 [Concomitant]

REACTIONS (4)
  - Instillation site pruritus [None]
  - Instillation site foreign body sensation [None]
  - Instillation site pain [None]
  - Abnormal sensation in eye [None]

NARRATIVE: CASE EVENT DATE: 20210121
